FAERS Safety Report 9091943 (Version 2)
Quarter: 2013Q1

REPORT INFORMATION
  Report Type: Spontaneous
  Country: US (occurrence: US)
  Receive Date: 20130131
  Receipt Date: 20130219
  Transmission Date: 20140127
  Serious: Yes (Other)
  Sender: FDA-Public Use
  Company Number: US-PFIZER INC-2013037123

PATIENT
  Age: 66 Year
  Sex: Female

DRUGS (5)
  1. EFFEXOR XR [Suspect]
     Dosage: 150 MG, 1X/DAY
     Route: 048
  2. CELEBREX [Suspect]
     Dosage: 200 MG, 1X/DAY
     Route: 048
  3. XANAX [Suspect]
     Dosage: UNK
  4. AMBIEN [Concomitant]
     Dosage: UNK
  5. LISDEXAMFETAMINE DIMESYLATE [Concomitant]
     Dosage: UNK

REACTIONS (2)
  - Bacterial infection [Unknown]
  - Influenza [Unknown]
